FAERS Safety Report 7052555-9 (Version None)
Quarter: 2010Q4

REPORT INFORMATION
  Report Type: 
  Country: None (occurrence: None)
  Receive Date: 20101019
  Receipt Date: 20101014
  Transmission Date: 20110411
  Serious: Yes (Life-Threatening)
  Sender: FDA-Public Use
  Company Number: DE-PFIZER INC-2010130910

PATIENT
  Age: 58 Year
  Sex: Female
  Weight: 69.5 kg

DRUGS (6)
  1. VARENICLINE TARTRATE [Suspect]
     Indication: SMOKING CESSATION THERAPY
     Dosage: UNK
     Dates: start: 20100817, end: 20101013
  2. METOPROLOL - SLOW RELEASE [Concomitant]
     Indication: HYPERTENSION
     Dosage: 95 MG, 1X/DAY
  3. PANTOPRAZOLE [Concomitant]
     Indication: OESOPHAGITIS
     Dosage: 40 MG, 1X/DAY
  4. SUCRALFATE [Concomitant]
     Indication: DUODENAL ULCER
     Dosage: 1 G, 1X/DAY
  5. CITALOPRAM [Concomitant]
     Indication: DEPRESSION
     Dosage: 20 MG, 1X/DAY
     Dates: start: 20020101
  6. AMITRIPTYLINE [Concomitant]
     Indication: DEPRESSION
     Dosage: 25 MG, 1X/DAY
     Dates: start: 20100401

REACTIONS (1)
  - ACUTE ABDOMEN [None]
